FAERS Safety Report 14314762 (Version 1)
Quarter: 2017Q4

REPORT INFORMATION
  Report Type: Spontaneous
  Country: TW (occurrence: TW)
  Receive Date: 20171221
  Receipt Date: 20171221
  Transmission Date: 20180321
  Serious: Yes (Other)
  Sender: FDA-Public Use
  Company Number: TW-PFIZER INC-2017537424

PATIENT
  Age: 41 Year
  Sex: Female

DRUGS (7)
  1. FAMOTIDINE. [Concomitant]
     Active Substance: FAMOTIDINE
     Dosage: 1 DF, TWICE DAILY
  2. METHOTREXATE (METHOTREXATE SODIUM) [Concomitant]
     Active Substance: METHOTREXATE SODIUM
     Dosage: 6 DF, WEEKLY (QW)
  3. PREDONINE [Concomitant]
     Active Substance: PREDNISOLONE
     Dosage: 1 DF, TWICE DAILY
  4. U-CAL [Concomitant]
     Dosage: 1 DF, ONCE DAILY
  5. FOLIC ACID. [Concomitant]
     Active Substance: FOLIC ACID
     Dosage: 1 DF, ONCE DAILY
  6. XELJANZ [Suspect]
     Active Substance: TOFACITINIB CITRATE
     Indication: RHEUMATOID ARTHRITIS
     Dosage: 5 MG, TWICE PER DAY
     Route: 048
     Dates: start: 20170505, end: 20171215
  7. VOLTAREN [Concomitant]
     Active Substance: DICLOFENAC SODIUM
     Dosage: 1 DF, TWICE DAILY

REACTIONS (4)
  - Post procedural infection [Not Recovered/Not Resolved]
  - Post procedural swelling [Not Recovered/Not Resolved]
  - Osteoarthritis [Not Recovered/Not Resolved]
  - Postoperative wound complication [Not Recovered/Not Resolved]

NARRATIVE: CASE EVENT DATE: 2017
